FAERS Safety Report 23443841 (Version 1)
Quarter: 2024Q1

REPORT INFORMATION
  Report Type: Spontaneous
  Country: CA (occurrence: None)
  Receive Date: 20240125
  Receipt Date: 20240125
  Transmission Date: 20240410
  Serious: Yes (Other)
  Sender: FDA-Public Use
  Company Number: CA-PFIZER INC-202400022609

PATIENT
  Age: 35 Year
  Sex: Female

DRUGS (10)
  1. METHOTREXATE [Suspect]
     Active Substance: METHOTREXATE
     Indication: Cheilitis
  2. CRISABOROLE [Suspect]
     Active Substance: CRISABOROLE
     Indication: Cheilitis
  3. DAPSONE [Suspect]
     Active Substance: DAPSONE
     Indication: Cheilitis
  4. DUPILUMAB [Suspect]
     Active Substance: DUPILUMAB
     Indication: Cheilitis
  5. DUPILUMAB [Suspect]
     Active Substance: DUPILUMAB
     Dosage: CYCLICAL
  6. ISOTRETINOIN [Suspect]
     Active Substance: ISOTRETINOIN
     Indication: Cheilitis
  7. HYDROCORTISONE VALERATE [Concomitant]
     Active Substance: HYDROCORTISONE VALERATE
     Indication: Cheilitis
  8. PARAFFIN [Concomitant]
     Active Substance: PARAFFIN
  9. TACROLIMUS [Concomitant]
     Active Substance: TACROLIMUS
     Indication: Prophylaxis
  10. VALACYCLOVIR [Concomitant]
     Active Substance: VALACYCLOVIR HYDROCHLORIDE
     Indication: Prophylaxis

REACTIONS (5)
  - Drug ineffective for unapproved indication [Recovered/Resolved]
  - Product use in unapproved indication [Recovered/Resolved]
  - Cheilitis [Recovered/Resolved]
  - Dermatitis [Recovered/Resolved]
  - Eyelid irritation [Recovered/Resolved]
